FAERS Safety Report 13792751 (Version 1)
Quarter: 2017Q3

REPORT INFORMATION
  Report Type: Spontaneous
  Country: GB (occurrence: GB)
  Receive Date: 20170726
  Receipt Date: 20170726
  Transmission Date: 20171127
  Serious: Yes (Hospitalization)
  Sender: FDA-Public Use
  Company Number: GB-PFIZER INC-1547737

PATIENT
  Age: 92 Year
  Sex: Female

DRUGS (5)
  1. CIPROFLOXACIN. [Suspect]
     Active Substance: CIPROFLOXACIN
     Indication: MORAXELLA INFECTION
     Dosage: 500 MG, 11 DOSES, FREQ: 2 DAY; INTERVAL: 1
     Route: 048
     Dates: start: 20110505, end: 20110510
  2. OMEPRAZOLE. [Suspect]
     Active Substance: OMEPRAZOLE
     Indication: PRODUCT USED FOR UNKNOWN INDICATION
     Dosage: UNK
  3. AUGMENTIN [Suspect]
     Active Substance: AMOXICILLIN\CLAVULANATE POTASSIUM
     Indication: PRODUCT USED FOR UNKNOWN INDICATION
     Dosage: 1.2 G, 2 DOSES, FREQ: 3 DAY; INTERVAL: 1
     Route: 042
     Dates: start: 20110504, end: 20110504
  4. CIPROFLOXACIN. [Suspect]
     Active Substance: CIPROFLOXACIN
     Indication: MORAXELLA INFECTION
     Dosage: 400 MG, 4 DOSES DUE TO VOMITING, FREQ: 2 DAY; INTERVAL: 1
     Route: 042
     Dates: start: 20110505, end: 20110510
  5. AMOXICILLIN. [Suspect]
     Active Substance: AMOXICILLIN
     Indication: PRODUCT USED FOR UNKNOWN INDICATION
     Dosage: 500 MG,  FREQ: 3 DAY; INTERVAL: 1
     Route: 048
     Dates: start: 20100610, end: 20100617

REACTIONS (13)
  - Abdominal tenderness [Unknown]
  - Abdominal distension [Unknown]
  - Norovirus test positive [Unknown]
  - Pneumonia [Unknown]
  - Productive cough [Unknown]
  - C-reactive protein increased [Unknown]
  - Moraxella test positive [Unknown]
  - Neutrophilia [Unknown]
  - Diarrhoea [Unknown]
  - Pyrexia [Unknown]
  - Inflammatory marker increased [Unknown]
  - Clostridium difficile infection [Recovered/Resolved]
  - Vomiting [Unknown]

NARRATIVE: CASE EVENT DATE: 20110505
